FAERS Safety Report 6969451-5 (Version None)
Quarter: 2010Q3

REPORT INFORMATION
  Report Type: 
  Country: None (occurrence: None)
  Receive Date: 20100902
  Receipt Date: 20100824
  Transmission Date: 20110219
  Serious: Yes (Other)
  Sender: FDA-Public Use
  Company Number: 2010SP046081

PATIENT
  Sex: Female

DRUGS (1)
  1. IMPLANON [Suspect]
     Indication: CONTRACEPTION
     Dosage: 68 MG; SBDE
     Route: 059

REACTIONS (4)
  - HYPERTHYROIDISM [None]
  - MENORRHAGIA [None]
  - MENSTRUATION IRREGULAR [None]
  - METRORRHAGIA [None]
